FAERS Safety Report 10093483 (Version 1)
Quarter: 2014Q2

REPORT INFORMATION
  Report Type: Spontaneous
  Country: US (occurrence: US)
  Receive Date: 20140421
  Receipt Date: 20140421
  Transmission Date: 20141212
  Serious: No
  Sender: FDA-Public Use
  Company Number: US-SA-2014SA000125

PATIENT
  Sex: Female

DRUGS (4)
  1. ALLEGRA 24 HOUR [Suspect]
     Indication: MULTIPLE ALLERGIES
     Dosage: PATIENT TAKES MEDICINE  1.5 YEARS AGO
     Route: 048
  2. MUCINEX [Suspect]
     Route: 065
  3. KENALOG [Suspect]
     Route: 065
  4. ASPIRIN ^BAYER^ [Concomitant]

REACTIONS (4)
  - Erythema [Not Recovered/Not Resolved]
  - Feeling abnormal [Not Recovered/Not Resolved]
  - Back pain [Not Recovered/Not Resolved]
  - Wrong technique in drug usage process [Unknown]
